FAERS Safety Report 7145581-2 (Version None)
Quarter: 2010Q4

REPORT INFORMATION
  Report Type: 
  Country: None (occurrence: None)
  Receive Date: 20101124
  Receipt Date: 20101108
  Transmission Date: 20110411
  Serious: Yes (Hospitalization)
  Sender: FDA-Public Use
  Company Number: BVT-000771

PATIENT
  Age: 24 Month
  Sex: Female

DRUGS (1)
  1. ANAKINRA [Suspect]
     Indication: MUCKLE-WELLS SYNDROME
     Dosage: (SUBCUTANEOUS)
     Route: 058

REACTIONS (6)
  - ANXIETY [None]
  - PUNCTURE SITE PAIN [None]
  - PUNCTURE SITE REACTION [None]
  - SOMNOLENCE [None]
  - SWELLING [None]
  - VOMITING [None]
